FAERS Safety Report 7950229-0 (Version None)
Quarter: 2011Q4

REPORT INFORMATION
  Report Type: 
  Country: None (occurrence: None)
  Receive Date: 20111130
  Receipt Date: 20111116
  Transmission Date: 20120403
  Serious: Yes (Hospitalization)
  Sender: FDA-Public Use
  Company Number: US-BAYER-2011-029230

PATIENT
  Age: 41 Year
  Sex: Female
  Weight: 66.667 kg

DRUGS (17)
  1. DROSPIRENONE AND ETHINYL ESTRADIOL [Suspect]
     Indication: CONTRACEPTION
     Dosage: UNK
     Dates: start: 20061001, end: 20090301
  2. POTASSIUM ACETATE [Concomitant]
     Dosage: UNK
     Dates: start: 19970101
  3. PULMICORT [Concomitant]
  4. XOPENEX [Concomitant]
     Dosage: UNK
     Dates: start: 20090112
  5. INDERAL [Concomitant]
     Indication: BASEDOW'S DISEASE
     Dosage: UNK
     Dates: start: 19970101
  6. ASTELIN [Concomitant]
     Dosage: 137 UNK, UNK
     Route: 045
  7. BENTYL [Concomitant]
     Dosage: 10 MG, BID
     Dates: start: 20090313
  8. WELLBUTRIN [Concomitant]
     Dosage: 300 MG, QD
  9. CLONAZEPAM [Concomitant]
     Dosage: 0.5 MG, TID
     Dates: start: 20090313
  10. SINGULAIR [Concomitant]
     Dosage: 10 MG, UNK
  11. PROPRANOLOL LONG ACTING [Concomitant]
     Dosage: 80 MG, BID
  12. MAXZIDE [Concomitant]
     Dosage: UNK
     Dates: start: 20090313
  13. YASMIN [Suspect]
     Indication: CONTRACEPTION
     Dosage: UNK
     Dates: start: 20061001, end: 20090301
  14. DYAZIDE [Concomitant]
     Indication: SWELLING
     Dosage: UNK
     Dates: start: 19970101
  15. VYTORIN [Concomitant]
     Indication: BLOOD CHOLESTEROL INCREASED
     Dosage: UNK
     Dates: start: 20090313
  16. SYNTHROID [Concomitant]
     Dosage: UNK
     Dates: start: 19980101
  17. ASPIRIN [Concomitant]
     Dosage: 325 MG, QD
     Dates: start: 20090313

REACTIONS (10)
  - CEREBROVASCULAR ACCIDENT [None]
  - PAIN [None]
  - CONVULSION [None]
  - HEADACHE [None]
  - INJURY [None]
  - AMNESIA [None]
  - HYPOAESTHESIA [None]
  - MOBILITY DECREASED [None]
  - EMOTIONAL DISTRESS [None]
  - ANXIETY [None]
